FAERS Safety Report 17360930 (Version 1)
Quarter: 2020Q1

REPORT INFORMATION
  Report Type: Spontaneous
  Country: US (occurrence: US)
  Receive Date: 20200203
  Receipt Date: 20200203
  Transmission Date: 20200409
  Serious: No
  Sender: FDA-Public Use
  Company Number: US-SA-2019SA262337

PATIENT
  Age: 64 Year
  Sex: Female

DRUGS (5)
  1. MUPIROCIN. [Concomitant]
     Active Substance: MUPIROCIN
     Indication: INFLAMMATION
  2. BUDESONIDE. [Concomitant]
     Active Substance: BUDESONIDE
     Indication: SINUSITIS
  3. BUDESONIDE. [Concomitant]
     Active Substance: BUDESONIDE
     Indication: INFLAMMATION
  4. DUPIXENT [Suspect]
     Active Substance: DUPILUMAB
     Indication: NASAL POLYPS
     Dosage: 300 MG, QOW
     Route: 058
     Dates: start: 20190919
  5. MUPIROCIN. [Concomitant]
     Active Substance: MUPIROCIN
     Indication: SINUSITIS

REACTIONS (2)
  - Condition aggravated [Not Recovered/Not Resolved]
  - Sinusitis [Not Recovered/Not Resolved]

NARRATIVE: CASE EVENT DATE: 201912
